FAERS Safety Report 17565611 (Version 1)
Quarter: 2020Q1

REPORT INFORMATION
  Report Type: Spontaneous
  Country: US (occurrence: US)
  Receive Date: 20200320
  Receipt Date: 20200320
  Transmission Date: 20200409
  Serious: No
  Sender: FDA-Public Use
  Company Number: None

PATIENT
  Age: 33 Year
  Sex: Female

DRUGS (7)
  1. WOMEN^S PROBIOTICS [Concomitant]
  2. EPIDUO FORTE [Suspect]
     Active Substance: ADAPALENE\BENZOYL PEROXIDE
     Indication: ACNE
     Route: 061
  3. VENTOLIN [Concomitant]
     Active Substance: ALBUTEROL SULFATE
  4. BIOTIN [Concomitant]
     Active Substance: BIOTIN
  5. MULTIVITAMINS [Concomitant]
     Active Substance: VITAMINS
  6. LORAZEPAM. [Concomitant]
     Active Substance: LORAZEPAM
  7. ARNUITY ELLIPTA [Concomitant]
     Active Substance: FLUTICASONE FUROATE

REACTIONS (4)
  - Erythema [None]
  - Skin reaction [None]
  - Dry skin [None]
  - Burning sensation [None]

NARRATIVE: CASE EVENT DATE: 20200318
